FAERS Safety Report 21440311 (Version 1)
Quarter: 2022Q4

REPORT INFORMATION
  Report Type: Report from Study
  Country: US (occurrence: US)
  Receive Date: 20221011
  Receipt Date: 20221011
  Transmission Date: 20230113
  Serious: No
  Sender: FDA-Public Use
  Company Number: US-AMNEAL PHARMACEUTICALS-2021-AMRX-05312

PATIENT
  Age: 53 Year
  Sex: Female
  Weight: 55.3 kg

DRUGS (4)
  1. LIORESAL [Suspect]
     Active Substance: BACLOFEN
     Dosage: 140.20284 ?G, \DAY
     Route: 037
     Dates: end: 20190110
  2. LIORESAL [Suspect]
     Active Substance: BACLOFEN
     Dosage: 70.10142 ?G, \DAY
     Route: 037
     Dates: start: 20190110, end: 2019
  3. LIORESAL [Suspect]
     Active Substance: BACLOFEN
     Dosage: 110.08999 ?G, \DAY
     Route: 037
     Dates: start: 20190521, end: 20190822
  4. LIORESAL [Suspect]
     Active Substance: BACLOFEN
     Dosage: 129.88819 ?G, \DAY
     Route: 037
     Dates: start: 20190822

REACTIONS (7)
  - Fall [Recovered/Resolved]
  - Somnolence [Recovered/Resolved]
  - Memory impairment [Recovered/Resolved]
  - Tremor [Recovered/Resolved]
  - Pruritus [Recovered/Resolved]
  - Device dislocation [Recovered/Resolved]
  - Complication associated with device [Recovered/Resolved]

NARRATIVE: CASE EVENT DATE: 20190110
